FAERS Safety Report 5715764-4 (Version None)
Quarter: 2008Q2

REPORT INFORMATION
  Report Type: 
  Country: None (occurrence: None)
  Receive Date: 20080422
  Receipt Date: 20080408
  Transmission Date: 20081010
  Serious: Yes (Other)
  Sender: FDA-Public Use
  Company Number: SPV1-2008-00531

PATIENT
  Age: 68 Year
  Sex: Male

DRUGS (3)
  1. ANAGRELIDE HYDROCHLORIDE [Suspect]
     Indication: ESSENTIAL THROMBOCYTHAEMIA
     Dosage: 1.0 MG AM AND 2.0 MG EVENING, ORAL
     Route: 048
  2. PEGASYS [Suspect]
     Indication: MYELOFIBROSIS
     Dosage: 135 UG, 1X/WEEK,
     Dates: start: 20080115, end: 20080125
  3. PEGASYS [Suspect]
     Indication: MYELOFIBROSIS
     Dosage: 135 UG, 1X/WEEK,
     Dates: start: 20080212

REACTIONS (6)
  - ANAEMIA [None]
  - DRUG INTERACTION [None]
  - MYELOFIBROSIS [None]
  - PLATELET COUNT INCREASED [None]
  - THERAPEUTIC RESPONSE DELAYED [None]
  - THROMBOCYTOPENIA [None]
